FAERS Safety Report 6543608-X (Version None)
Quarter: 2010Q1

REPORT INFORMATION
  Report Type: 
  Country: None (occurrence: None)
  Receive Date: 20100119
  Receipt Date: 20100119
  Transmission Date: 20100710
  Serious: No
  Sender: FDA-Public Use
  Company Number: None

PATIENT
  Age: 36 Year
  Sex: Female
  Weight: 54.4316 kg

DRUGS (1)
  1. IMITREX [Suspect]
     Indication: MIGRAINE
     Dates: start: 20090101, end: 20090401

REACTIONS (2)
  - CONDITION AGGRAVATED [None]
  - MIGRAINE [None]
